FAERS Safety Report 4688803-X (Version None)
Quarter: 2005Q2

REPORT INFORMATION
  Report Type: 
  Country: None (occurrence: None)
  Receive Date: 20050613
  Receipt Date: 20050602
  Transmission Date: 20051028
  Serious: Yes (Hospitalization)
  Sender: FDA-Public Use
  Company Number: US-GLAXOSMITHKLINE-A0560959A

PATIENT
  Age: 14 Year
  Sex: Female

DRUGS (7)
  1. THIOGUANINE [Suspect]
     Indication: ACUTE LYMPHOCYTIC LEUKAEMIA
     Dosage: 100MG PER DAY
     Route: 048
     Dates: start: 20050516
  2. CYCLOPHOSPHAMIDE [Suspect]
  3. CYTARABINE [Suspect]
  4. DAPSONE [Concomitant]
  5. ZOFRAN [Concomitant]
  6. ZANTAC [Concomitant]
  7. DEPO-PROVERA [Concomitant]

REACTIONS (7)
  - BLISTER [None]
  - GASTROINTESTINAL HAEMORRHAGE [None]
  - MUCOSAL INFLAMMATION [None]
  - PAIN [None]
  - PANCYTOPENIA [None]
  - RASH ERYTHEMATOUS [None]
  - SKIN EXFOLIATION [None]
